FAERS Safety Report 8720475 (Version 2)
Quarter: 2012Q4

REPORT INFORMATION
  Report Type: 
  Country: JP (occurrence: JP)
  Receive Date: 20120813
  Receipt Date: 20120920
  Transmission Date: 20130627
  Serious: Yes (Death, Hospitalization)
  Sender: FDA-Public Use
  Company Number: JP-ASTRAZENECA-2012SE55850

PATIENT
  Age: 86 Year
  Sex: Female
  Weight: 47 kg

DRUGS (12)
  1. ECARD COMBINATION TABLETS HD [Suspect]
     Indication: HYPERTENSION
     Route: 048
     Dates: start: 20100403, end: 20110923
  2. NORVASC [Concomitant]
     Indication: HYPERTENSION
     Route: 048
     Dates: start: 20090206, end: 20100402
  3. NORVASC [Concomitant]
     Indication: HYPERTENSION
     Route: 048
     Dates: start: 20100403
  4. CRESTOR [Concomitant]
     Indication: DYSLIPIDAEMIA
     Route: 048
     Dates: start: 20070302
  5. URSO [Concomitant]
     Indication: CHOLELITHIASIS
     Route: 048
     Dates: start: 20070302
  6. MUCOSTA [Concomitant]
     Indication: GASTRITIS
     Route: 048
     Dates: start: 20100403
  7. GANATON [Concomitant]
     Indication: GASTRITIS
     Route: 048
     Dates: start: 20100403
  8. RINGEREAZE [Concomitant]
     Indication: CERVICOBRACHIAL SYNDROME
     Route: 048
     Dates: start: 20100403
  9. MOTONALIN [Concomitant]
     Indication: CERVICOBRACHIAL SYNDROME
     Route: 048
     Dates: start: 20100403
  10. MYSLEE [Concomitant]
     Indication: INSOMNIA
     Route: 048
     Dates: start: 20100807
  11. DEPAS [Concomitant]
     Indication: INSOMNIA
     Route: 048
     Dates: start: 20100807
  12. HALFDIGOXIN KY [Concomitant]
     Indication: CARDIAC FAILURE CONGESTIVE
     Route: 048
     Dates: start: 20100403

REACTIONS (2)
  - Interstitial lung disease [Fatal]
  - Acute respiratory failure [None]
